FAERS Safety Report 8353192-6 (Version None)
Quarter: 2012Q2

REPORT INFORMATION
  Report Type: 
  Country: None (occurrence: None)
  Receive Date: 20120509
  Receipt Date: 20120430
  Transmission Date: 20120825
  Serious: Yes (Death, Other)
  Sender: FDA-Public Use
  Company Number: 201205000010

PATIENT
  Age: 27 Year
  Sex: Male

DRUGS (9)
  1. INOMAX [Suspect]
     Indication: OXYGEN SATURATION DECREASED
     Dosage: 20 PPM, CONTINUOUS, INHALATION   40, INHALATION   5, INHALATION
     Route: 055
     Dates: end: 20120420
  2. INOMAX [Suspect]
     Indication: ACUTE RESPIRATORY DISTRESS SYNDROME
     Dosage: 20 PPM, CONTINUOUS, INHALATION   40, INHALATION   5, INHALATION
     Route: 055
     Dates: end: 20120420
  3. INOMAX [Suspect]
     Indication: OXYGEN SATURATION DECREASED
     Dosage: 20 PPM, CONTINUOUS, INHALATION   40, INHALATION   5, INHALATION
     Route: 055
     Dates: start: 20120415
  4. INOMAX [Suspect]
     Indication: ACUTE RESPIRATORY DISTRESS SYNDROME
     Dosage: 20 PPM, CONTINUOUS, INHALATION   40, INHALATION   5, INHALATION
     Route: 055
     Dates: start: 20120415
  5. INOMAX [Suspect]
     Indication: OXYGEN SATURATION DECREASED
     Dosage: 20 PPM, CONTINUOUS, INHALATION   40, INHALATION   5, INHALATION
     Route: 055
     Dates: start: 20120415, end: 20120415
  6. INOMAX [Suspect]
     Indication: ACUTE RESPIRATORY DISTRESS SYNDROME
     Dosage: 20 PPM, CONTINUOUS, INHALATION   40, INHALATION   5, INHALATION
     Route: 055
     Dates: start: 20120415, end: 20120415
  7. INOMAX [Suspect]
     Indication: OXYGEN SATURATION DECREASED
     Dosage: 20 PPM, CONTINUOUS, INHALATION   40, INHALATION   5, INHALATION
     Route: 055
     Dates: start: 20120420, end: 20120428
  8. INOMAX [Suspect]
     Indication: ACUTE RESPIRATORY DISTRESS SYNDROME
     Dosage: 20 PPM, CONTINUOUS, INHALATION   40, INHALATION   5, INHALATION
     Route: 055
     Dates: start: 20120420, end: 20120428
  9. BROAD SPECTRUM ANTIBIOTICS [Concomitant]

REACTIONS (3)
  - OXYGEN SATURATION DECREASED [None]
  - PULMONARY HAEMORRHAGE [None]
  - OFF LABEL USE [None]
